FAERS Safety Report 7552488-5 (Version None)
Quarter: 2011Q2

REPORT INFORMATION
  Report Type: 
  Country: None (occurrence: None)
  Receive Date: 20110616
  Receipt Date: 20110613
  Transmission Date: 20111010
  Serious: Yes (Hospitalization)
  Sender: FDA-Public Use
  Company Number: DE-BRISTOL-MYERS SQUIBB COMPANY-14898795

PATIENT
  Age: 84 Year
  Sex: Male

DRUGS (4)
  1. METAMIZOL [Concomitant]
     Route: 048
     Dates: start: 20091211
  2. TILIDINE HCL + NALOXONE HCL [Concomitant]
     Dosage: NALOXON:50MG+4MG
     Dates: start: 20091211
  3. WARFARIN SODIUM [Suspect]
     Indication: THROMBOSIS PROPHYLAXIS
     Dosage: INTERRUPTED ON 11-DEC-2010.
     Route: 048
     Dates: start: 20080908, end: 20091210
  4. PLACEBO [Suspect]
     Indication: THROMBOSIS PROPHYLAXIS
     Dosage: WITH APIXABAN 11DEC09 WITH WARFARIN 10DEC09
     Route: 048
     Dates: start: 20080908, end: 20091201

REACTIONS (1)
  - FEMORAL NECK FRACTURE [None]
